FAERS Safety Report 16116920 (Version 1)
Quarter: 2019Q1

REPORT INFORMATION
  Report Type: Spontaneous
  Country: US (occurrence: US)
  Receive Date: 20190326
  Receipt Date: 20190326
  Transmission Date: 20190418
  Serious: No
  Sender: FDA-Public Use
  Company Number: US-PFIZER INC-2019125825

PATIENT
  Age: 66 Year
  Sex: Male

DRUGS (1)
  1. SILDENAFIL CITRATE. [Suspect]
     Active Substance: SILDENAFIL CITRATE
     Indication: ERECTILE DYSFUNCTION
     Dosage: UNK MG, AS NEEDED [1/2 PO DAILY]
     Route: 048

REACTIONS (4)
  - Testicular pain [Unknown]
  - Gait disturbance [Unknown]
  - Pain [Unknown]
  - Prostatic pain [Unknown]
